FAERS Safety Report 20508835 (Version 4)
Quarter: 2023Q4

REPORT INFORMATION
  Report Type: Spontaneous
  Country: US (occurrence: US)
  Receive Date: 20220223
  Receipt Date: 20231214
  Transmission Date: 20240110
  Serious: Yes (Hospitalization)
  Sender: FDA-Public Use
  Company Number: US-SA-SAC00000000302210

PATIENT

DRUGS (2)
  1. LARONIDASE [Suspect]
     Active Substance: LARONIDASE
     Indication: Mucopolysaccharidosis I
     Dosage: 49.3 MG, QW
     Route: 042
     Dates: start: 20050104
  2. LARONIDASE [Suspect]
     Active Substance: LARONIDASE
     Dosage: 52.2 MG, QW
     Route: 042
     Dates: start: 20230816

REACTIONS (6)
  - Hospitalisation [Unknown]
  - Electrolyte imbalance [Recovering/Resolving]
  - Hypervolaemia [Recovering/Resolving]
  - Mitral valve disease [Recovering/Resolving]
  - Aortic disorder [Recovering/Resolving]
  - COVID-19 [Recovered/Resolved]

NARRATIVE: CASE EVENT DATE: 20211225
